FAERS Safety Report 14559882 (Version 1)
Quarter: 2018Q1

REPORT INFORMATION
  Report Type: Spontaneous
  Country: CN (occurrence: CN)
  Receive Date: 20180220
  Receipt Date: 20180220
  Transmission Date: 20180509
  Serious: No
  Sender: FDA-Public Use
  Company Number: None

PATIENT
  Age: 26 Year
  Sex: Male
  Weight: 67 kg

DRUGS (1)
  1. LIPODISSOLVE [Suspect]
     Active Substance: UNSPECIFIED INGREDIENT
     Dates: start: 20150213

REACTIONS (3)
  - Hypoaesthesia [None]
  - Product use in unapproved indication [None]
  - Deformity [None]

NARRATIVE: CASE EVENT DATE: 20150213
